FAERS Safety Report 17806731 (Version 1)
Quarter: 2020Q2

REPORT INFORMATION
  Report Type: Spontaneous
  Country: ES (occurrence: ES)
  Receive Date: 20200520
  Receipt Date: 20200520
  Transmission Date: 20200714
  Serious: Yes (Hospitalization)
  Sender: FDA-Public Use
  Company Number: ES-BIOVITRUM-2020ES2271

PATIENT
  Sex: Female

DRUGS (1)
  1. ANAKINRA [Suspect]
     Active Substance: ANAKINRA
     Indication: FAMILIAL MEDITERRANEAN FEVER

REACTIONS (3)
  - Ill-defined disorder [Unknown]
  - Abdominal pain [Unknown]
  - Off label use [Not Recovered/Not Resolved]
